FAERS Safety Report 26129618 (Version 1)
Quarter: 2025Q4

REPORT INFORMATION
  Report Type: Spontaneous
  Country: EU (occurrence: EU)
  Receive Date: 20251208
  Receipt Date: 20251208
  Transmission Date: 20260118
  Serious: Yes (Other)
  Sender: AUROBINDO
  Company Number: EU-CHEPLA-2025013112

PATIENT
  Age: 84 Year
  Sex: Female

DRUGS (7)
  1. NEBIVOLOL [Suspect]
     Active Substance: NEBIVOLOL
     Indication: Product used for unknown indication
     Dosage: 1 DOSAGE FORM, ONCE A DAY (5 MG IN THE EVENING, 1 TABLET)
     Route: 065
  2. URAPIDIL [Suspect]
     Active Substance: URAPIDIL
     Indication: Hypertension
     Dosage: 1 DOSAGE FORM, ONCE A DAY (1-0-0 ORAL VIA BALLOON NASOGASTRIC TUBE, CRUSHED)
     Dates: start: 2021
  3. URAPIDIL [Suspect]
     Active Substance: URAPIDIL
     Dosage: 1 DOSAGE FORM, ONCE A DAY (0-0-1 (7 P.M.) ORAL VIA BALLOON NASOGASTRIC TUBE, CRUSHED)
     Dates: start: 20251104
  4. ATORVASTATIN [Suspect]
     Active Substance: ATORVASTATIN
     Indication: Product used for unknown indication
     Dosage: 1 DOSAGE FORM, ONCE A DAY (20 MG, 1 TABLET IN THE EVENING)
     Route: 065
  5. LERCANIDIPINE [Suspect]
     Active Substance: LERCANIDIPINE
     Indication: Product used for unknown indication
     Dosage: 10 MILLIGRAM (1 MONTH) (10 MG AT NIGHT)
     Route: 065
  6. MOXONIDINE [Suspect]
     Active Substance: MOXONIDINE
     Indication: Product used for unknown indication
     Dosage: 2 DOSAGE FORM, ONCE A DAY (0.2 MG IN THE EVENING, 2 TABLETS)
     Route: 065
  7. NEXIUM [Suspect]
     Active Substance: ESOMEPRAZOLE MAGNESIUM
     Indication: Product used for unknown indication
     Dosage: 10 MILLIGRAM, ONCE A DAY (10 MG PER DAY)
     Route: 065

REACTIONS (8)
  - Cerebrovascular accident [Unknown]
  - Refusal of treatment by patient [Unknown]
  - Blood pressure decreased [Unknown]
  - Dry mouth [Unknown]
  - Miosis [Unknown]
  - Skin odour abnormal [Unknown]
  - Drug ineffective [Unknown]
  - Off label use [Unknown]
